FAERS Safety Report 8257970 (Version 3)
Quarter: 2012Q4

REPORT INFORMATION
  Report Type: 
  Country: US (occurrence: US)
  Receive Date: 20111121
  Receipt Date: 20120906
  Transmission Date: 20130627
  Serious: Yes (Other)
  Sender: FDA-Public Use
  Company Number: US-ASTRAZENECA-2011SE68538

PATIENT
  Age: 55 Year
  Sex: Male
  Weight: 64.9 kg

DRUGS (13)
  1. NEXIUM [Suspect]
     Indication: OESOPHAGITIS
     Route: 048
     Dates: start: 2011
  2. NEXIUM [Suspect]
     Indication: HIATUS HERNIA
     Route: 048
     Dates: start: 2011
  3. NEXIUM [Suspect]
     Indication: GASTROOESOPHAGEAL REFLUX DISEASE
     Route: 048
     Dates: start: 2011
  4. NEXIUM [Suspect]
     Indication: OESOPHAGITIS
     Route: 048
     Dates: start: 201207
  5. NEXIUM [Suspect]
     Indication: HIATUS HERNIA
     Route: 048
     Dates: start: 201207
  6. NEXIUM [Suspect]
     Indication: GASTROOESOPHAGEAL REFLUX DISEASE
     Route: 048
     Dates: start: 201207
  7. NEXIUM [Suspect]
     Indication: OESOPHAGITIS
     Route: 048
  8. NEXIUM [Suspect]
     Indication: HIATUS HERNIA
     Route: 048
  9. NEXIUM [Suspect]
     Indication: GASTROOESOPHAGEAL REFLUX DISEASE
     Route: 048
  10. SOMA [Concomitant]
     Indication: FEELING OF RELAXATION
  11. DIAZEPAM [Concomitant]
  12. AMOXICILLIN [Concomitant]
  13. FLAGYL [Concomitant]

REACTIONS (9)
  - Gait disturbance [Unknown]
  - Spinal disorder [Unknown]
  - Pancreatitis [Unknown]
  - Spinal column stenosis [Unknown]
  - Fungal oesophagitis [Unknown]
  - Gastrooesophageal reflux disease [Unknown]
  - Oesophageal pain [Unknown]
  - Pain [Unknown]
  - Drug ineffective [Unknown]
